FAERS Safety Report 5419782-5 (Version None)
Quarter: 2007Q3

REPORT INFORMATION
  Report Type: 
  Country: None (occurrence: None)
  Receive Date: 20070820
  Receipt Date: 20070814
  Transmission Date: 20080115
  Serious: Yes (Death)
  Sender: FDA-Public Use
  Company Number: GB-ASTRAZENECA-2007AC01444

PATIENT
  Age: 19 Year
  Sex: Male

DRUGS (6)
  1. LIGNOCAINE [Suspect]
  2. IBUPROFEN TABLETS [Suspect]
  3. CYCLOBENZAPRINE HCL [Suspect]
  4. PHENYLPROPANOLAMINE [Suspect]
  5. CHLORPHENIRAMINE TAB [Suspect]
  6. PHENYTOIN [Suspect]

REACTIONS (3)
  - METABOLIC ACIDOSIS [None]
  - OVERDOSE [None]
  - TACHYCARDIA [None]
